FAERS Safety Report 24081446 (Version 1)
Quarter: 2024Q3

REPORT INFORMATION
  Report Type: Report from Study
  Country: CA (occurrence: CA)
  Receive Date: 20240712
  Receipt Date: 20240712
  Transmission Date: 20241016
  Serious: Yes (Congenital Anomaly)
  Sender: AMGEN
  Company Number: CA-002147023-NVSC2024CA139248

PATIENT
  Age: 12 Month
  Weight: 10.21 kg

DRUGS (1)
  1. AIMOVIG [Suspect]
     Active Substance: ERENUMAB-AOOE
     Indication: Foetal exposure during pregnancy
     Dosage: MATERNAL EXPOSURE DURING PREGNANCY^
     Route: 064

REACTIONS (3)
  - Congenital anomaly [Unknown]
  - Motor developmental delay [Unknown]
  - Foetal exposure during pregnancy [Unknown]
